FAERS Safety Report 6814751-2 (Version None)
Quarter: 2010Q3

REPORT INFORMATION
  Report Type: 
  Country: None (occurrence: None)
  Receive Date: 20100702
  Receipt Date: 20100622
  Transmission Date: 20110219
  Serious: Yes (Disabling)
  Sender: FDA-Public Use
  Company Number: ES-ABBOTT-09P-144-0584020-00

PATIENT
  Sex: Female
  Weight: 42 kg

DRUGS (1)
  1. HUMIRA [Suspect]
     Indication: CROHN'S DISEASE
     Route: 058
     Dates: start: 20081106, end: 20090410

REACTIONS (1)
  - ALOPECIA [None]
